FAERS Safety Report 11811041 (Version 1)
Quarter: 2015Q4

REPORT INFORMATION
  Report Type: Spontaneous
  Country: CH (occurrence: CH)
  Receive Date: 20151208
  Receipt Date: 20151208
  Transmission Date: 20160305
  Serious: Yes (Other)
  Sender: FDA-Public Use
  Company Number: CH-LPDUSPRD-20150960

PATIENT
  Age: 35 Year
  Sex: Female
  Weight: 57 kg

DRUGS (1)
  1. FERINJECT [Suspect]
     Active Substance: FERRIC CARBOXYMALTOSE
     Dosage: 500 MG IN 250 ML NACL
     Route: 041
     Dates: start: 20150420, end: 20150420

REACTIONS (2)
  - Throat tightness [Unknown]
  - Urticaria [Unknown]

NARRATIVE: CASE EVENT DATE: 20150420
